FAERS Safety Report 18412465 (Version 4)
Quarter: 2021Q1

REPORT INFORMATION
  Report Type: Report from Study
  Country: None (occurrence: US)
  Receive Date: 20201021
  Receipt Date: 20210120
  Transmission Date: 20210419
  Serious: Yes (Other)
  Sender: FDA-Public Use
  Company Number: US-ABBVIE-20K-163-3612640-00

PATIENT
  Age: 73 Year
  Sex: Male

DRUGS (1)
  1. HUMIRA [Suspect]
     Active Substance: ADALIMUMAB
     Indication: HIDRADENITIS
     Dosage: CITRATE FREE
     Route: 058

REACTIONS (9)
  - Scrotal swelling [Recovered/Resolved]
  - Hidradenitis [Recovering/Resolving]
  - Wound infection [Recovered/Resolved]
  - Infection [Not Recovered/Not Resolved]
  - Inflammation [Not Recovered/Not Resolved]
  - Skin induration [Recovering/Resolving]
  - Wound haemorrhage [Recovered/Resolved]
  - Purpura [Not Recovered/Not Resolved]
  - Purulent discharge [Recovered/Resolved]

NARRATIVE: CASE EVENT DATE: 202012
